FAERS Safety Report 5933525-8 (Version None)
Quarter: 2008Q4

REPORT INFORMATION
  Report Type: 
  Country: None (occurrence: None)
  Receive Date: 20081028
  Receipt Date: 20081028
  Transmission Date: 20090506
  Serious: Yes (Other)
  Sender: FDA-Public Use
  Company Number: None

PATIENT
  Sex: Female

DRUGS (3)
  1. WELLBUTRIN XL [Suspect]
     Indication: BIPOLAR II DISORDER
     Dosage: 300 MG ONCE Q DAY PO JAN/FEB 2007
     Route: 048
  2. WELLBUTRIN XL [Suspect]
     Indication: CYCLOTHYMIC DISORDER
     Dosage: 300 MG ONCE Q DAY PO JAN/FEB 2007
     Route: 048
  3. WELLBUTRIN XL [Suspect]
     Indication: DYSTHYMIC DISORDER
     Dosage: 300 MG ONCE Q DAY PO JAN/FEB 2007
     Route: 048

REACTIONS (8)
  - ABNORMAL BEHAVIOUR [None]
  - AGITATION [None]
  - ANXIETY [None]
  - DEPRESSION [None]
  - ECONOMIC PROBLEM [None]
  - FEAR [None]
  - ONYCHOPHAGIA [None]
  - THERAPEUTIC RESPONSE UNEXPECTED WITH DRUG SUBSTITUTION [None]
